FAERS Safety Report 6206986-7 (Version None)
Quarter: 2009Q2

REPORT INFORMATION
  Report Type: 
  Country: None (occurrence: None)
  Receive Date: 20090528
  Receipt Date: 20090521
  Transmission Date: 20091009
  Serious: Yes (Hospitalization)
  Sender: FDA-Public Use
  Company Number: US-AVENTIS-200915246GDDC

PATIENT
  Age: 57 Year
  Sex: Female
  Weight: 120.66 kg

DRUGS (3)
  1. DOCETAXEL [Suspect]
     Dosage: DOSE: UNK
     Route: 042
  2. CYTOXAN [Suspect]
     Dosage: DOSE: UNK
  3. ADRIAMYCIN PFS [Suspect]
     Dosage: DOSE: UNK

REACTIONS (1)
  - MENTAL STATUS CHANGES [None]
